FAERS Safety Report 17573555 (Version 4)
Quarter: 2020Q2

REPORT INFORMATION
  Report Type: Spontaneous
  Country: US (occurrence: US)
  Receive Date: 20200323
  Receipt Date: 20200511
  Transmission Date: 20200713
  Serious: Yes (Other)
  Sender: FDA-Public Use
  Company Number: US-DSJP-DSU-2020-109573

PATIENT

DRUGS (5)
  1. ENHERTU [Suspect]
     Active Substance: FAM-TRASTUZUMAB DERUXTECAN-NXKI
     Indication: BREAST CANCER
     Dosage: 375 MG, ONCE EVERY 3 WK
     Route: 042
     Dates: start: 20200123, end: 20200221
  2. ENHERTU [Suspect]
     Active Substance: FAM-TRASTUZUMAB DERUXTECAN-NXKI
     Indication: METASTASES TO LIVER
     Dosage: 375 MG, ONCE EVERY 3 WK
     Route: 042
     Dates: start: 20200217, end: 20200217
  3. XGEVA [Concomitant]
     Active Substance: DENOSUMAB
     Indication: BONE MARROW DISORDER
     Dosage: UNK, ONCE EVERY 3 MO
     Route: 058
  4. VINORELBINE [Concomitant]
     Active Substance: VINORELBINE TARTRATE
     Indication: BREAST CANCER
     Dosage: UNK, ONCE EVERY 1 WK
     Route: 042
     Dates: start: 20190812, end: 20200114
  5. HERCEPTIN [Concomitant]
     Active Substance: TRASTUZUMAB

REACTIONS (1)
  - Disease progression [Not Recovered/Not Resolved]

NARRATIVE: CASE EVENT DATE: 20200221
